FAERS Safety Report 15959378 (Version 1)
Quarter: 2019Q1

REPORT INFORMATION
  Report Type: Spontaneous
  Country: IT (occurrence: IT)
  Receive Date: 20190214
  Receipt Date: 20190214
  Transmission Date: 20190417
  Serious: Yes (Hospitalization)
  Sender: FDA-Public Use
  Company Number: IT-SA-2019SA037689

PATIENT
  Age: 90 Year
  Sex: Male

DRUGS (2)
  1. AMARYL [Suspect]
     Active Substance: GLIMEPIRIDE
     Indication: TYPE 2 DIABETES MELLITUS
     Dosage: 2 MG, QD
     Route: 048
     Dates: start: 20100101, end: 20181224
  2. TARGIN [Concomitant]
     Active Substance: NALOXONE HYDROCHLORIDE\OXYCODONE HYDROCHLORIDE
     Dosage: UNK

REACTIONS (4)
  - Neutrophilia [Recovering/Resolving]
  - Hypoglycaemia [Recovering/Resolving]
  - Renal failure [Recovering/Resolving]
  - Leukocytosis [Recovering/Resolving]

NARRATIVE: CASE EVENT DATE: 20181224
